FAERS Safety Report 16750982 (Version 1)
Quarter: 2019Q3

REPORT INFORMATION
  Report Type: Spontaneous
  Country: ES (occurrence: ES)
  Receive Date: 20190828
  Receipt Date: 20190828
  Transmission Date: 20191005
  Serious: Yes (Life-Threatening, Hospitalization, Other)
  Sender: FDA-Public Use
  Company Number: ES-JNJFOC-20190823553

PATIENT
  Sex: Female

DRUGS (1)
  1. DOXORUBICIN HYDROCHLORIDE. [Suspect]
     Active Substance: DOXORUBICIN HYDROCHLORIDE
     Indication: DIFFUSE LARGE B-CELL LYMPHOMA
     Route: 065
     Dates: start: 201607, end: 201701

REACTIONS (14)
  - Bradycardia [Recovering/Resolving]
  - Febrile neutropenia [Unknown]
  - Left ventricular end-diastolic pressure increased [Recovering/Resolving]
  - Left ventricular dysfunction [Recovering/Resolving]
  - Right ventricular dysfunction [Recovering/Resolving]
  - Ventricular asystole [Recovering/Resolving]
  - Off label use [Unknown]
  - Cardiac arrest [Recovering/Resolving]
  - Right ventricular dilatation [Recovering/Resolving]
  - Product use in unapproved indication [Unknown]
  - Hepatomegaly [Unknown]
  - Cardiotoxicity [Recovering/Resolving]
  - Tricuspid valve incompetence [Recovering/Resolving]
  - Hypotension [Recovering/Resolving]

NARRATIVE: CASE EVENT DATE: 201608
